FAERS Safety Report 16346825 (Version 1)
Quarter: 2019Q2

REPORT INFORMATION
  Report Type: Spontaneous
  Country: US (occurrence: US)
  Receive Date: 20190523
  Receipt Date: 20190523
  Transmission Date: 20190711
  Serious: Yes (Hospitalization)
  Sender: FDA-Public Use
  Company Number: US-PFIZER INC-2019214406

PATIENT
  Age: 69 Year
  Sex: Female
  Weight: 68.95 kg

DRUGS (1)
  1. IBRANCE [Suspect]
     Active Substance: PALBOCICLIB
     Dosage: UNK

REACTIONS (4)
  - Back disorder [Unknown]
  - Pain in extremity [Unknown]
  - Weight decreased [Unknown]
  - Gait inability [Unknown]
